FAERS Safety Report 9225655 (Version 1)
Quarter: 2013Q2

REPORT INFORMATION
  Report Type: Spontaneous
  Country: US (occurrence: None)
  Receive Date: 20130410
  Receipt Date: 20130410
  Transmission Date: 20140414
  Serious: Yes (Hospitalization)
  Sender: FDA-Public Use
  Company Number: None

PATIENT
  Age: 42 Year
  Sex: Male
  Weight: 77.5 kg

DRUGS (1)
  1. TETRACAINE [Suspect]

REACTIONS (3)
  - Hyperhidrosis [None]
  - Tachycardia [None]
  - Muscle rigidity [None]
